FAERS Safety Report 7305885-7 (Version None)
Quarter: 2011Q1

REPORT INFORMATION
  Report Type: 
  Country: None (occurrence: None)
  Receive Date: 20110209
  Receipt Date: 20110202
  Transmission Date: 20110831
  Serious: Yes (Other)
  Sender: FDA-Public Use
  Company Number: WAES 1102USA00360

PATIENT
  Age: 62 Year
  Sex: Male
  Weight: 55.7924 kg

DRUGS (6)
  1. ISOSORBIDE DINITRATE [Concomitant]
  2. LIPITOR [Suspect]
     Indication: BLOOD CHOLESTEROL INCREASED
     Dosage: PO
     Route: 047
  3. VITAMINS (UNSPECIFIED) [Concomitant]
  4. ASPIRIN [Concomitant]
  5. ZOCOR [Suspect]
     Indication: BLOOD CHOLESTEROL INCREASED
     Dosage: 80 MG/DAILY/PO
     Route: 048
  6. PLAVIX [Concomitant]

REACTIONS (5)
  - OSTEOSIS [None]
  - SPINAL FRACTURE [None]
  - ARTERIAL DISORDER [None]
  - ECONOMIC PROBLEM [None]
  - MYOCARDIAL INFARCTION [None]
